FAERS Safety Report 7349415-2 (Version None)
Quarter: 2011Q1

REPORT INFORMATION
  Report Type: 
  Country: None (occurrence: None)
  Receive Date: 20110314
  Receipt Date: 20110304
  Transmission Date: 20110831
  Serious: No
  Sender: FDA-Public Use
  Company Number: A0916777A

PATIENT
  Age: 35 Year
  Sex: Female

DRUGS (6)
  1. SINGULAIR [Concomitant]
  2. AMOXICILLIN [Suspect]
     Dosage: 1CAP TWICE PER DAY
     Route: 048
     Dates: start: 20110121
  3. TYKERB [Suspect]
     Indication: BREAST CANCER
     Dosage: 5TAB PER DAY
     Route: 048
     Dates: start: 20110121
  4. XELODA [Concomitant]
  5. PREVACID [Concomitant]
  6. METOPROLOL [Concomitant]

REACTIONS (3)
  - VOMITING [None]
  - RASH [None]
  - SINUSITIS [None]
